FAERS Safety Report 19028337 (Version 2)
Quarter: 2021Q2

REPORT INFORMATION
  Report Type: Spontaneous
  Country: US (occurrence: US)
  Receive Date: 20210319
  Receipt Date: 20210512
  Transmission Date: 20210717
  Serious: No
  Sender: FDA-Public Use
  Company Number: US-ORGANON-O2103USA000406

PATIENT
  Sex: Female

DRUGS (2)
  1. NEXPLANON [Suspect]
     Active Substance: ETONOGESTREL
     Indication: CONTRACEPTION
     Dosage: 1 ROD EVERY 3 YEARS, ARM
     Route: 059
     Dates: start: 20201207, end: 2020
  2. NEXPLANON [Suspect]
     Active Substance: ETONOGESTREL
     Dosage: 1 ROD EVERY 3 YEARS, ARM
     Route: 059
     Dates: start: 20201207

REACTIONS (8)
  - Overdose [Unknown]
  - Heavy menstrual bleeding [Unknown]
  - Inflammation [Unknown]
  - Complication of device removal [Recovered/Resolved]
  - Product quality issue [Unknown]
  - Device expulsion [Unknown]
  - Device breakage [Recovered/Resolved]
  - Neuralgia [Unknown]

NARRATIVE: CASE EVENT DATE: 2020
